FAERS Safety Report 10570138 (Version 3)
Quarter: 2015Q1

REPORT INFORMATION
  Report Type: Spontaneous
  Country: GB (occurrence: None)
  Receive Date: 20141105
  Receipt Date: 20150227
  Transmission Date: 20150720
  Serious: Yes (Hospitalization)
  Sender: FDA-Public Use
  Company Number: FK201404755

PATIENT
  Age: 67 Year
  Sex: Female
  Weight: 70 kg

DRUGS (3)
  1. ABRAXANE [Suspect]
     Active Substance: PACLITAXEL
     Indication: OVARIAN CANCER
     Route: 041
     Dates: start: 20140530
  2. CARBOPLATIN (MANUFACTURER UNKNOWN) (CARBOPLATIN) (CARBOPLATIN) [Suspect]
     Active Substance: CARBOPLATIN
     Indication: OVARIAN CANCER
     Route: 041
     Dates: start: 20140530
  3. AFURESERTIB (AFURESERTIB) (AFURESERTIB) [Suspect]
     Active Substance: AFURESERTIB
     Indication: OVARIAN CANCER
     Route: 041
     Dates: start: 20140530

REACTIONS (2)
  - Rash maculo-papular [None]
  - Mucosal infection [None]

NARRATIVE: CASE EVENT DATE: 20140611
